FAERS Safety Report 9814679 (Version 2)
Quarter: 2014Q1

REPORT INFORMATION
  Report Type: Spontaneous
  Country: US (occurrence: US)
  Receive Date: 20140113
  Receipt Date: 20140113
  Transmission Date: 20141002
  Serious: Yes (Hospitalization)
  Sender: FDA-Public Use
  Company Number: US-SANOFI-AVENTIS-2012SA080527

PATIENT
  Age: 37 Year
  Sex: Female
  Weight: 60 kg

DRUGS (6)
  1. DOCETAXEL [Suspect]
     Indication: HER-2 POSITIVE BREAST CANCER
     Dosage: DOSAGE FORM: VIALS?DOSE: 75 MG/M2
     Route: 042
     Dates: start: 20090305, end: 20090326
  2. TRASTUZUMAB [Suspect]
     Indication: HER-2 POSITIVE BREAST CANCER
     Dosage: DOSAGE FORM: VIALS?DOSE: 8MG/KG
     Route: 042
     Dates: start: 20090305, end: 20090326
  3. BEVACIZUMAB [Suspect]
     Indication: HER-2 POSITIVE BREAST CANCER
     Dosage: DOSAGE FORM: VIALS?DOSE: 5MG/KG
     Route: 042
     Dates: start: 20090305, end: 20090326
  4. CARBOPLATIN [Suspect]
     Indication: HER-2 POSITIVE BREAST CANCER
     Dosage: DOSAGE FORM: VIALS?DOSE: 6 AUC
     Route: 042
     Dates: start: 20090305
  5. PRENATAL [Concomitant]
  6. PROMETHAZINE [Concomitant]
     Dates: start: 20090310

REACTIONS (1)
  - Febrile neutropenia [Recovered/Resolved]
